FAERS Safety Report 9395115 (Version 2)
Quarter: 2013Q4

REPORT INFORMATION
  Report Type: Spontaneous
  Country: JP (occurrence: JP)
  Receive Date: 20130711
  Receipt Date: 20131213
  Transmission Date: 20140711
  Serious: Yes (Death, Other)
  Sender: FDA-Public Use
  Company Number: PHHY2013JP073237

PATIENT
  Age: 55 Year
  Sex: Female

DRUGS (9)
  1. NEORAL [Suspect]
     Indication: HISTIOCYTOSIS HAEMATOPHAGIC
     Dosage: 200 MG, DAILY
     Route: 048
     Dates: start: 20121205, end: 20121211
  2. NEORAL [Suspect]
     Indication: OFF LABEL USE
     Dosage: 250 MG, DAILY
     Dates: start: 20121212, end: 20121220
  3. DEXAMETHASONE [Suspect]
     Dosage: 16 MG, DAILY
     Dates: start: 20121205, end: 20121218
  4. DEXAMETHASONE [Suspect]
     Dosage: 8 MG, DAILY
     Dates: start: 20121219, end: 20121221
  5. CORTICOSTEROIDS [Concomitant]
  6. LASTET [Concomitant]
     Dosage: 220 MG, UNK
     Dates: start: 20121205
  7. LASTET [Concomitant]
     Dosage: 220 MG, UNK
     Dates: start: 20121208
  8. LASTET [Concomitant]
     Dosage: 220 MG, UNK
     Dates: start: 20121212
  9. LASTET [Concomitant]
     Dosage: 220 MG, UNK
     Dates: start: 20121215

REACTIONS (3)
  - Fungal infection [Fatal]
  - Multi-organ failure [Unknown]
  - Neutropenia [Unknown]
